FAERS Safety Report 5671659-6 (Version None)
Quarter: 2008Q1

REPORT INFORMATION
  Report Type: 
  Country: None (occurrence: None)
  Receive Date: 20080313
  Receipt Date: 20080305
  Transmission Date: 20080703
  Serious: Yes (Life-Threatening, Hospitalization)
  Sender: FDA-Public Use
  Company Number: 2008VX000192

PATIENT
  Age: 81 Year
  Sex: Female

DRUGS (13)
  1. PERMAX [Suspect]
     Indication: PARKINSON'S DISEASE
     Dosage: 100 UG; QD; PO, 250 UG; QD; PO, 600 UG;QD; PO, 750 UG; QD; PO
     Route: 048
     Dates: start: 20001213, end: 20001221
  2. PERMAX [Suspect]
     Indication: PARKINSON'S DISEASE
     Dosage: 100 UG; QD; PO, 250 UG; QD; PO, 600 UG;QD; PO, 750 UG; QD; PO
     Route: 048
     Dates: start: 20001222, end: 20001225
  3. PERMAX [Suspect]
     Indication: PARKINSON'S DISEASE
     Dosage: 100 UG; QD; PO, 250 UG; QD; PO, 600 UG;QD; PO, 750 UG; QD; PO
     Route: 048
     Dates: start: 20001226, end: 20040802
  4. PERMAX [Suspect]
     Indication: PARKINSON'S DISEASE
     Dosage: 100 UG; QD; PO, 250 UG; QD; PO, 600 UG;QD; PO, 750 UG; QD; PO
     Route: 048
     Dates: start: 20040803, end: 20071113
  5. SELEGILINE HYDROCHLORIDE [Suspect]
     Dosage: 2.5 MG; BID; PO
     Route: 048
  6. AMANTADINE HCL [Suspect]
     Dosage: 50 MG; TID; PO
     Route: 048
     Dates: start: 20001226, end: 20071113
  7. CLONAZEPAM [Suspect]
     Dosage: 0.5 MG; TID; PO
     Route: 048
     Dates: start: 20001117, end: 20071113
  8. LEVODOPA BENSERAZIDE HYDROCHLO (MADOPAR) [Suspect]
     Dates: start: 19860101, end: 20071113
  9. LEVODOPA BENSERAZIDE HYDROCHLO (MADOPAR) [Suspect]
     Dates: start: 20071126
  10. ALFAROL [Concomitant]
  11. MAGNESIUM OXIDE [Concomitant]
  12. KETOPROFEN [Concomitant]
  13. LASIX [Concomitant]

REACTIONS (13)
  - BASOPHIL PERCENTAGE DECREASED [None]
  - EOSINOPHILIC PNEUMONIA ACUTE [None]
  - INTERSTITIAL LUNG DISEASE [None]
  - LYMPHOCYTE PERCENTAGE DECREASED [None]
  - LYMPHOCYTE STIMULATION TEST POSITIVE [None]
  - MONOCYTE PERCENTAGE DECREASED [None]
  - NEUTROPHIL PERCENTAGE DECREASED [None]
  - PLEURAL CALCIFICATION [None]
  - PLEURAL EFFUSION [None]
  - PNEUMOCYSTIS JIROVECI PNEUMONIA [None]
  - PNEUMONIA CYTOMEGALOVIRAL [None]
  - PNEUMONIA PRIMARY ATYPICAL [None]
  - PNEUMONITIS [None]
